FAERS Safety Report 8200654-8 (Version None)
Quarter: 2012Q1

REPORT INFORMATION
  Report Type: 
  Country: None (occurrence: None)
  Receive Date: 20120307
  Receipt Date: 20120213
  Transmission Date: 20120608
  Serious: Yes (Hospitalization)
  Sender: FDA-Public Use
  Company Number: 2012PROUSA00921

PATIENT
  Age: 74 Year
  Sex: Male
  Weight: 79.4 kg

DRUGS (5)
  1. PROVENGE [Suspect]
     Dosage: 250 MG, SINGLE, INTRAVENOUS
     Route: 042
     Dates: start: 20111215, end: 20111215
  2. FIRMAGON (DEGARELIX ACETATE) [Concomitant]
  3. CALCIUM + VITAMIN D [Concomitant]
  4. PROVENGE [Suspect]
     Indication: PROSTATE CANCER METASTATIC
     Dosage: 250 ML, SINGLE, INTRAVENOUS
     Route: 042
     Dates: start: 20111117, end: 20111117
  5. DENOSUMAB (DENOSUMAB) [Concomitant]

REACTIONS (5)
  - CLOSTRIDIAL INFECTION [None]
  - CELLULITIS [None]
  - DECREASED APPETITE [None]
  - NO THERAPEUTIC RESPONSE [None]
  - RADIATION SKIN INJURY [None]
